FAERS Safety Report 14075332 (Version 1)
Quarter: 2017Q4

REPORT INFORMATION
  Report Type: Spontaneous
  Country: JP (occurrence: JP)
  Receive Date: 20171011
  Receipt Date: 20171011
  Transmission Date: 20180321
  Serious: Yes (Death, Hospitalization)
  Sender: FDA-Public Use
  Company Number: JP-ASTRAZENECA-2017SE68093

PATIENT
  Age: 24399 Day
  Sex: Male
  Weight: 66 kg

DRUGS (8)
  1. IRESSA [Suspect]
     Active Substance: GEFITINIB
     Indication: LUNG ADENOCARCINOMA
     Route: 048
     Dates: start: 20170531, end: 20170624
  2. GILOTRIF [Suspect]
     Active Substance: AFATINIB
     Indication: LUNG ADENOCARCINOMA
     Route: 048
     Dates: start: 20170516, end: 20170525
  3. CODEINE PHOSPHATE HEMIHYDRATE [Concomitant]
     Active Substance: CODEINE PHOSPHATE
     Indication: COUGH
     Route: 048
     Dates: start: 20170418, end: 20170624
  4. ASVERIN (TIPEPIDINE HIBENZATE) [Concomitant]
     Active Substance: TIPEPIDINE HIBENZATE
     Indication: COUGH
     Route: 048
     Dates: start: 20170607, end: 20170624
  5. LUNESTA [Concomitant]
     Active Substance: ESZOPICLONE
     Indication: INSOMNIA
     Route: 048
     Dates: start: 20170405, end: 20170624
  6. CARBOCISTEINE [Concomitant]
     Active Substance: CARBOCYSTEINE
     Indication: PRODUCTIVE COUGH
     Route: 048
     Dates: start: 20170524, end: 20170624
  7. DEXTROMETHORPHAN [Concomitant]
     Active Substance: DEXTROMETHORPHAN
     Indication: COUGH
     Route: 048
     Dates: start: 20170405, end: 20170624
  8. MAGMITT [Concomitant]
     Active Substance: MAGNESIUM OXIDE
     Indication: CONSTIPATION
     Route: 048
     Dates: start: 20170518, end: 20170624

REACTIONS (4)
  - Lung neoplasm malignant [Fatal]
  - Interstitial lung disease [Fatal]
  - Lymphangiosis carcinomatosa [Fatal]
  - Tumour haemorrhage [Fatal]

NARRATIVE: CASE EVENT DATE: 20170622
